FAERS Safety Report 21460915 (Version 1)
Quarter: 2022Q4

REPORT INFORMATION
  Report Type: Report from Study
  Country: US (occurrence: US)
  Receive Date: 20221015
  Receipt Date: 20221015
  Transmission Date: 20230113
  Serious: No
  Sender: FDA-Public Use
  Company Number: US-ABBVIE-4130676

PATIENT
  Sex: Female
  Weight: 97.522 kg

DRUGS (3)
  1. HUMIRA [Suspect]
     Active Substance: ADALIMUMAB
     Indication: Colitis ulcerative
     Dosage: STRENGTH:40MG?CITRATE FREE
     Route: 058
     Dates: start: 202003
  2. LISINOPRIL [Concomitant]
     Active Substance: LISINOPRIL
     Indication: Hypertension
  3. Pfizer vaccine [Concomitant]
     Indication: COVID-19 immunisation
     Dosage: 1 IN ONCE
     Route: 030

REACTIONS (7)
  - Weight increased [Not Recovered/Not Resolved]
  - Migraine [Recovered/Resolved]
  - Hypertension [Unknown]
  - Pain [Recovering/Resolving]
  - Fluid retention [Recovering/Resolving]
  - Peripheral swelling [Recovering/Resolving]
  - Inflammation [Recovering/Resolving]

NARRATIVE: CASE EVENT DATE: 20220101
